FAERS Safety Report 8798897 (Version 1)
Quarter: 2012Q4

REPORT INFORMATION
  Report Type: 
  Country: BR (occurrence: BR)
  Receive Date: 20120920
  Receipt Date: 20120920
  Transmission Date: 20130627
  Serious: Yes (Other)
  Sender: FDA-Public Use
  Company Number: PHHY2012BR081057

PATIENT
  Sex: Female

DRUGS (1)
  1. AMLODIPINE AND VALSARTAN [Suspect]
     Indication: BLOOD PRESSURE
     Dosage: 1 DF, once a day

REACTIONS (2)
  - Thrombosis [Unknown]
  - Oedema peripheral [Recovering/Resolving]
